FAERS Safety Report 14170244 (Version 2)
Quarter: 2017Q4

REPORT INFORMATION
  Report Type: Spontaneous
  Country: None (occurrence: DE)
  Receive Date: 20171108
  Receipt Date: 20171220
  Transmission Date: 20180321
  Serious: Yes (Other)
  Sender: FDA-Public Use
  Company Number: DE-MEDAC PHARMA, INC.-2033542

PATIENT
  Sex: Female

DRUGS (3)
  1. METEX (METHOTREXATE SODIUM) [Suspect]
     Active Substance: METHOTREXATE SODIUM
     Indication: FIBROMYALGIA
     Dates: start: 20170912, end: 20171023
  2. NOVALGIN [Concomitant]
     Active Substance: METAMIZOLE SODIUM
  3. FOLIC ACID. [Concomitant]
     Active Substance: FOLIC ACID

REACTIONS (4)
  - Headache [Recovered/Resolved]
  - Product use in unapproved indication [None]
  - Urinary incontinence [Unknown]
  - Myalgia [Recovered/Resolved]
